FAERS Safety Report 4684535-2 (Version None)
Quarter: 2005Q2

REPORT INFORMATION
  Report Type: 
  Country: None (occurrence: None)
  Receive Date: 20050603
  Receipt Date: 20050523
  Transmission Date: 20051028
  Serious: Yes (Hospitalization)
  Sender: FDA-Public Use
  Company Number: 2005078517

PATIENT
  Age: 74 Year
  Sex: Female
  Weight: 86.1834 kg

DRUGS (8)
  1. BEXTRA [Suspect]
     Indication: ARTHRITIS
     Dosage: 20 MG (20 MG, 1 IN 1 D), ORAL
     Route: 048
     Dates: start: 20030101
  2. TOPROL (METOPROLOL) [Concomitant]
  3. PRINIVIL [Concomitant]
  4. PROZAC [Concomitant]
  5. ZOCOR [Concomitant]
  6. FOSAMAX [Concomitant]
  7. SYNTHROID (LEVOTHYTOXINE SODIUM) [Concomitant]
  8. ASPIRIN [Concomitant]

REACTIONS (10)
  - ACARODERMATITIS [None]
  - CONDITION AGGRAVATED [None]
  - DYSPNOEA [None]
  - FEELING ABNORMAL [None]
  - NASAL SINUS DRAINAGE [None]
  - NASOPHARYNGITIS [None]
  - RASH PRURITIC [None]
  - SCAR [None]
  - SKIN INFECTION [None]
  - TREATMENT NONCOMPLIANCE [None]
